FAERS Safety Report 7683962-9 (Version None)
Quarter: 2011Q3

REPORT INFORMATION
  Report Type: 
  Country: None (occurrence: None)
  Receive Date: 20110815
  Receipt Date: 20110805
  Transmission Date: 20111222
  Serious: Yes (Hospitalization)
  Sender: FDA-Public Use
  Company Number: PL-ROCHE-794893

PATIENT
  Sex: Male

DRUGS (4)
  1. PEGINTERFERON ALFA-2A [Suspect]
     Indication: HEPATITIS C
     Route: 058
     Dates: start: 20101130, end: 20110801
  2. RIBAVIRIN [Suspect]
     Indication: HEPATITIS C
     Route: 048
     Dates: start: 20101130, end: 20110712
  3. FUROSEMIDE [Concomitant]
     Route: 048
     Dates: start: 20110729
  4. GLUCOSE [Concomitant]
     Indication: PROPHYLAXIS
     Route: 042
     Dates: start: 20110729

REACTIONS (1)
  - HYDROTHORAX [None]
